FAERS Safety Report 5293198-7 (Version None)
Quarter: 2007Q2

REPORT INFORMATION
  Report Type: 
  Country: None (occurrence: None)
  Receive Date: 20070411
  Receipt Date: 20070327
  Transmission Date: 20071010
  Serious: Yes (Hospitalization)
  Sender: FDA-Public Use
  Company Number: JP-JNJFOC-20070400250

PATIENT
  Sex: Female
  Weight: 54 kg

DRUGS (24)
  1. REMICADE [Suspect]
     Route: 042
  2. REMICADE [Suspect]
     Route: 042
  3. REMICADE [Suspect]
     Route: 042
  4. REMICADE [Suspect]
     Route: 042
  5. REMICADE [Suspect]
     Route: 042
  6. REMICADE [Suspect]
     Route: 042
  7. REMICADE [Suspect]
     Route: 042
  8. REMICADE [Suspect]
     Route: 042
  9. REMICADE [Suspect]
     Route: 042
  10. REMICADE [Suspect]
     Route: 042
  11. REMICADE [Suspect]
     Route: 042
  12. REMICADE [Suspect]
     Route: 042
  13. REMICADE [Suspect]
     Indication: RHEUMATOID ARTHRITIS
     Route: 042
  14. METHOTREXATE [Suspect]
     Route: 048
  15. METHOTREXATE [Suspect]
     Route: 048
  16. METHOTREXATE [Suspect]
     Route: 048
  17. METHOTREXATE [Suspect]
     Indication: RHEUMATOID ARTHRITIS
     Route: 048
  18. RINDERON [Suspect]
     Indication: DRUG USE FOR UNKNOWN INDICATION
     Route: 048
  19. SULFASALAZINE [Suspect]
     Indication: RHEUMATOID ARTHRITIS
     Route: 048
  20. OSTELUC [Concomitant]
     Indication: RHEUMATOID ARTHRITIS
     Route: 048
  21. CYTOTEC [Concomitant]
     Indication: RHEUMATOID ARTHRITIS
     Route: 048
  22. PANTOSIN [Concomitant]
     Indication: RHEUMATOID ARTHRITIS
     Route: 048
  23. FOLIAMIN [Concomitant]
     Route: 048
  24. HEAVY MAGNESIUM OXIDE [Concomitant]
     Route: 048

REACTIONS (2)
  - HIP ARTHROPLASTY [None]
  - OSTEOMYELITIS CHRONIC [None]
